FAERS Safety Report 15755992 (Version 30)
Quarter: 2021Q2

REPORT INFORMATION
  Report Type: Spontaneous
  Country: CA (occurrence: CA)
  Receive Date: 20181224
  Receipt Date: 20210525
  Transmission Date: 20210716
  Serious: Yes (Other)
  Sender: FDA-Public Use
  Company Number: CA-CELLTRION INC.-2018CA020262

PATIENT

DRUGS (75)
  1. ACETAMINOPHEN. [Concomitant]
     Active Substance: ACETAMINOPHEN
     Indication: PREMEDICATION
     Dosage: 650 MG, UNK
     Route: 048
  2. DIPHENHYDRAMINE. [Concomitant]
     Active Substance: DIPHENHYDRAMINE
     Dosage: 25 UNK
     Dates: start: 20200824, end: 20200824
  3. HYDROMORPHONE [Concomitant]
     Active Substance: HYDROMORPHONE
     Dosage: 18 MG, 1X/DAY
     Route: 065
  4. HYDROCORTISONE. [Concomitant]
     Active Substance: HYDROCORTISONE
     Dosage: 100 UNK
     Dates: start: 20200703, end: 20200703
  5. INFLECTRA [Suspect]
     Active Substance: INFLIXIMAB-DYYB
     Dosage: 315 MG, EVERY 8 WEEKS
     Route: 042
     Dates: start: 20190103
  6. INFLECTRA [Suspect]
     Active Substance: INFLIXIMAB-DYYB
     Dosage: 315 MG, EVERY 6 WEEKS
     Route: 042
     Dates: start: 20191023
  7. INFLECTRA [Suspect]
     Active Substance: INFLIXIMAB-DYYB
     Dosage: 340 MG, EVERY 6 WEEKS
     Route: 042
     Dates: start: 20191204, end: 20191204
  8. INFLECTRA [Suspect]
     Active Substance: INFLIXIMAB-DYYB
     Dosage: 340 MG, EVERY 4 WEEKS
     Route: 042
     Dates: start: 20200727
  9. DIPHENHYDRAMINE. [Concomitant]
     Active Substance: DIPHENHYDRAMINE
     Dosage: 50 MG, UNK
     Route: 048
     Dates: start: 20190213, end: 20190213
  10. DIPHENHYDRAMINE. [Concomitant]
     Active Substance: DIPHENHYDRAMINE
     Dosage: 50 MG
     Dates: start: 20200226, end: 20200226
  11. INFLECTRA [Suspect]
     Active Substance: INFLIXIMAB-DYYB
     Dosage: 315 MG, EVERY 8 WEEKS FOR 12 MONTHS
     Route: 042
     Dates: start: 20180711, end: 20180905
  12. INFLECTRA [Suspect]
     Active Substance: INFLIXIMAB-DYYB
     Dosage: 340 MG, EVERY 4 WEEKS
     Route: 042
     Dates: start: 20200108
  13. INFLECTRA [Suspect]
     Active Substance: INFLIXIMAB-DYYB
     Dosage: 340 MG, EVERY 4 WEEKS
     Route: 042
     Dates: start: 20200602
  14. INFLECTRA [Suspect]
     Active Substance: INFLIXIMAB-DYYB
     Dosage: 340 MG, EVERY 4 WEEKS
     Route: 042
     Dates: start: 20200824
  15. DICLECTIN [Concomitant]
     Active Substance: DOXYLAMINE SUCCINATE\PYRIDOXINE HYDROCHLORIDE
     Dosage: 20 MG, 1X/DAY
     Route: 065
     Dates: start: 1999
  16. DIPHENHYDRAMINE. [Concomitant]
     Active Substance: DIPHENHYDRAMINE
     Indication: PREMEDICATION
     Dosage: 50 MG, UNK
     Route: 048
  17. DIMENHYDRINATE. [Concomitant]
     Active Substance: DIMENHYDRINATE
     Dosage: 50 MG, UNK
     Route: 048
     Dates: start: 20190213, end: 20190213
  18. DIMENHYDRINATE. [Concomitant]
     Active Substance: DIMENHYDRINATE
     Dosage: 50 UNK
     Dates: start: 20200824, end: 20200824
  19. DILAUDID [Concomitant]
     Active Substance: HYDROMORPHONE HYDROCHLORIDE
     Dosage: 5 MG, 1X/DAY
     Route: 065
  20. DOXEPIN [Concomitant]
     Active Substance: DOXEPIN
     Dosage: 75 MG, 1X/DAY
     Route: 065
     Dates: start: 2015
  21. GRAVOL [Concomitant]
     Active Substance: DIMENHYDRINATE
     Indication: PREMEDICATION
     Dosage: 50 MG
     Dates: start: 20200727, end: 20200727
  22. HYDROCORTISONE. [Concomitant]
     Active Substance: HYDROCORTISONE
     Dosage: 100 UNK
     Dates: start: 20200824, end: 20200824
  23. SALAGEN [Concomitant]
     Active Substance: PILOCARPINE HYDROCHLORIDE
     Dosage: UNK
     Route: 065
  24. VITAMIN D [Concomitant]
     Active Substance: VITAMIN D NOS
     Dosage: 50000 IU, WEEKLY
     Route: 065
  25. INFLECTRA [Suspect]
     Active Substance: INFLIXIMAB-DYYB
     Indication: RHEUMATOID ARTHRITIS
     Dosage: 189 MG, 0, 2, 6, THEN EVERY 8 WEEKS
     Route: 042
     Dates: start: 20180201, end: 20180516
  26. INFLECTRA [Suspect]
     Active Substance: INFLIXIMAB-DYYB
     Dosage: 315 MG, EVERY 8 WEEKS FOR 12 MONTHS
     Route: 042
     Dates: start: 20181029
  27. INFLECTRA [Suspect]
     Active Substance: INFLIXIMAB-DYYB
     Dosage: 340 MG, EVERY 4 WEEKS
     Route: 042
     Dates: start: 20200226
  28. INFLECTRA [Suspect]
     Active Substance: INFLIXIMAB-DYYB
     Dosage: 340 MG, EVERY 4 WEEKS
     Route: 042
     Dates: start: 20200325
  29. ACETAMINOPHEN. [Concomitant]
     Active Substance: ACETAMINOPHEN
     Dosage: 650 UNK
     Dates: start: 20200703, end: 20200703
  30. DIPHENHYDRAMINE. [Concomitant]
     Active Substance: DIPHENHYDRAMINE
     Dosage: 25 MG, UNK
     Route: 048
  31. DIPHENHYDRAMINE. [Concomitant]
     Active Substance: DIPHENHYDRAMINE
     Dosage: 50 MG
     Route: 048
     Dates: start: 20200325, end: 20200325
  32. FOLIC ACID. [Concomitant]
     Active Substance: FOLIC ACID
     Dosage: 5 MG (1 TABLET), WEEKLY
     Route: 048
  33. HYDROCORTISONE. [Concomitant]
     Active Substance: HYDROCORTISONE
     Dosage: 100 MG, UNK
     Route: 042
     Dates: start: 20191204, end: 20191204
  34. IMOVANE [Concomitant]
     Active Substance: ZOPICLONE
     Dosage: 7.5 MG, UNK (TAB)
     Route: 048
  35. INFLECTRA [Suspect]
     Active Substance: INFLIXIMAB-DYYB
     Dosage: 315 MG, EVERY 6 WEEKS
     Route: 042
     Dates: start: 20190327
  36. ACETAMINOPHEN. [Concomitant]
     Active Substance: ACETAMINOPHEN
     Dosage: 650 MG, UNK
     Dates: start: 20191204, end: 20191204
  37. ACETAMINOPHEN. [Concomitant]
     Active Substance: ACETAMINOPHEN
     Dosage: 650 MG, UNK
     Dates: start: 20200226, end: 20200226
  38. APO?TRAZODONE [Concomitant]
     Active Substance: TRAZODONE HYDROCHLORIDE
     Dosage: 100 MG, UNK (TAB)
     Route: 048
  39. DIPHENHYDRAMINE. [Concomitant]
     Active Substance: DIPHENHYDRAMINE
     Dosage: 50 UNK
     Dates: start: 20200703, end: 20200703
  40. METHOTREXATE. [Concomitant]
     Active Substance: METHOTREXATE
     Dosage: 10 DF, WEEKLY (2.5 MG)
     Route: 048
     Dates: start: 1999
  41. ONDANSETRON [Concomitant]
     Active Substance: ONDANSETRON
     Dosage: 4 MG, 3X/DAY
     Route: 065
     Dates: start: 2016
  42. INFLECTRA [Suspect]
     Active Substance: INFLIXIMAB-DYYB
     Dosage: 315 MG, EVERY 6 WEEKS
     Route: 042
     Dates: start: 20190213
  43. INFLECTRA [Suspect]
     Active Substance: INFLIXIMAB-DYYB
     Dosage: 315 MG, EVERY 6 WEEKS
     Route: 042
     Dates: start: 20190508
  44. INFLECTRA [Suspect]
     Active Substance: INFLIXIMAB-DYYB
     Dosage: 315 MG, EVERY 6 WEEKS
     Route: 042
     Dates: start: 20190911
  45. INFLECTRA [Suspect]
     Active Substance: INFLIXIMAB-DYYB
     Dosage: 340 MG, EVERY 4 WEEKS
     Route: 042
     Dates: start: 20200422
  46. ACETAMINOPHEN. [Concomitant]
     Active Substance: ACETAMINOPHEN
     Dosage: 650 MG, UNK
     Route: 048
     Dates: start: 20190213, end: 20190213
  47. DICLECTIN [Concomitant]
     Active Substance: DOXYLAMINE SUCCINATE\PYRIDOXINE HYDROCHLORIDE
     Dosage: 10 MG, UNK (TAB)
     Route: 048
  48. DIMENHYDRINATE. [Concomitant]
     Active Substance: DIMENHYDRINATE
     Indication: PREMEDICATION
     Dosage: 50 MG, UNK
     Route: 048
  49. DIMENHYDRINATE. [Concomitant]
     Active Substance: DIMENHYDRINATE
     Dosage: 50 UNK
     Dates: start: 20200703, end: 20200703
  50. HYDROMORPHONE [Concomitant]
     Active Substance: HYDROMORPHONE
     Dosage: 30 MG, UNK
     Route: 048
  51. PROLIA [Concomitant]
     Active Substance: DENOSUMAB
     Dosage: 60 MG/ML, UNK
     Route: 065
  52. INFLECTRA [Suspect]
     Active Substance: INFLIXIMAB-DYYB
     Dosage: 315 MG, EVERY 6 WEEKS
     Route: 042
     Dates: start: 20181029, end: 20191023
  53. INFLECTRA [Suspect]
     Active Substance: INFLIXIMAB-DYYB
     Dosage: 315 MG, EVERY 6 WEEKS
     Route: 042
     Dates: start: 20190605
  54. INFLECTRA [Suspect]
     Active Substance: INFLIXIMAB-DYYB
     Dosage: 340 MG, EVERY 4 WEEKS
     Route: 042
     Dates: start: 20200921
  55. INFLECTRA [Suspect]
     Active Substance: INFLIXIMAB-DYYB
     Dosage: 340 MG, EVERY 4 WEEKS
     Route: 042
     Dates: start: 20210209
  56. ACETAMINOPHEN. [Concomitant]
     Active Substance: ACETAMINOPHEN
     Dosage: 650 MG, UNK
     Route: 048
     Dates: start: 20200727, end: 20200727
  57. ATIVAN [Concomitant]
     Active Substance: LORAZEPAM
     Dosage: 1 MG, UNK
     Route: 048
  58. DIMENHYDRINATE. [Concomitant]
     Active Substance: DIMENHYDRINATE
     Dosage: 50 MG, UNK
     Route: 048
     Dates: start: 20191204, end: 20191204
  59. DIMENHYDRINATE. [Concomitant]
     Active Substance: DIMENHYDRINATE
     Dosage: 50 MG, UNK
     Route: 048
     Dates: start: 20200325, end: 20200325
  60. HYDROCORTISONE. [Concomitant]
     Active Substance: HYDROCORTISONE
     Dosage: 100 MG, UNK
     Route: 042
     Dates: start: 20190213, end: 20190213
  61. HYDROCORTISONE. [Concomitant]
     Active Substance: HYDROCORTISONE
     Dosage: 100 MG, UNK
     Dates: start: 20200226, end: 20200226
  62. PREDNISONE. [Concomitant]
     Active Substance: PREDNISONE
     Dosage: 1?20 MG, 1X/DAY
     Route: 048
     Dates: start: 1999
  63. PANTOLOC [Concomitant]
     Active Substance: PANTOPRAZOLE SODIUM
     Dosage: 40 MG, 1X/DAY (1 TAB)
     Route: 048
     Dates: start: 2009
  64. INFLECTRA [Suspect]
     Active Substance: INFLIXIMAB-DYYB
     Dosage: 315 MG, EVERY 8 WEEKS FOR 12 MONTHS
     Route: 042
     Dates: start: 20180905
  65. INFLECTRA [Suspect]
     Active Substance: INFLIXIMAB-DYYB
     Dosage: 340 MG, EVERY 4 WEEKS
     Route: 042
     Dates: start: 20200703
  66. ACETAMINOPHEN. [Concomitant]
     Active Substance: ACETAMINOPHEN
     Dosage: 650 MG, UNK
     Route: 048
     Dates: start: 20200325, end: 20200325
  67. ACETAMINOPHEN. [Concomitant]
     Active Substance: ACETAMINOPHEN
     Dosage: 650 MG, UNK
     Route: 048
     Dates: start: 20200824, end: 20200824
  68. DIPHENHYDRAMINE. [Concomitant]
     Active Substance: DIPHENHYDRAMINE
     Dosage: 25 MG, UNK
     Route: 048
     Dates: start: 20191204, end: 20191204
  69. DIPHENHYDRAMINE. [Concomitant]
     Active Substance: DIPHENHYDRAMINE
     Dosage: 50 UNK
     Dates: start: 20200727, end: 20200727
  70. DIMENHYDRINATE. [Concomitant]
     Active Substance: DIMENHYDRINATE
     Dosage: 50 MG, UNK
     Dates: start: 20200226, end: 20200226
  71. DILAUDID [Concomitant]
     Active Substance: HYDROMORPHONE HYDROCHLORIDE
     Dosage: 4 MG, 1X/DAY (TAB)
     Route: 048
  72. HYDROCORTISONE. [Concomitant]
     Active Substance: HYDROCORTISONE
     Indication: PREMEDICATION
     Dosage: 100 MG, UNK
     Route: 042
  73. HYDROCORTISONE. [Concomitant]
     Active Substance: HYDROCORTISONE
     Dosage: 100 MG, UNK
     Route: 042
     Dates: start: 20200325, end: 20200325
  74. HYDROCORTISONE. [Concomitant]
     Active Substance: HYDROCORTISONE
     Dosage: 100 UNK
     Dates: start: 20200727, end: 20200727
  75. TECTA [Concomitant]
     Active Substance: PANTOPRAZOLE MAGNESIUM
     Dosage: 1 DF, 1X/DAY (40 MG)
     Route: 048
     Dates: start: 2009

REACTIONS (25)
  - Condition aggravated [Not Recovered/Not Resolved]
  - Temporomandibular joint syndrome [Unknown]
  - Balance disorder [Not Recovered/Not Resolved]
  - C-reactive protein increased [Unknown]
  - Pain [Unknown]
  - Pain in jaw [Unknown]
  - Weight increased [Unknown]
  - Deep vein thrombosis [Not Recovered/Not Resolved]
  - Haematuria [Unknown]
  - Red blood cell sedimentation rate increased [Unknown]
  - Nephrolithiasis [Not Recovered/Not Resolved]
  - Blood pressure fluctuation [Unknown]
  - Skin laceration [Unknown]
  - Skin wound [Unknown]
  - Weight decreased [Unknown]
  - Condition aggravated [Not Recovered/Not Resolved]
  - Blood pressure increased [Unknown]
  - Intentional product use issue [Unknown]
  - Inappropriate schedule of product administration [Unknown]
  - Peripheral swelling [Unknown]
  - Dysstasia [Not Recovered/Not Resolved]
  - Feeding disorder [Unknown]
  - Limb injury [Recovered/Resolved]
  - Off label use [Unknown]
  - Joint injury [Unknown]

NARRATIVE: CASE EVENT DATE: 20180516
